FAERS Safety Report 10385617 (Version 1)
Quarter: 2014Q3

REPORT INFORMATION
  Report Type: Spontaneous
  Country: JP (occurrence: None)
  Receive Date: 20140812
  Receipt Date: 20140812
  Transmission Date: 20150326
  Serious: Yes (Other)
  Sender: FDA-Public Use
  Company Number: VAL_03275 _2014

PATIENT
  Age: 55 Year
  Sex: Male

DRUGS (1)
  1. ROCALTROL [Suspect]
     Active Substance: CALCITRIOL
     Indication: RENAL FAILURE CHRONIC
     Route: 048
     Dates: start: 20140530

REACTIONS (4)
  - Platelet count decreased [None]
  - Anaemia [None]
  - White blood cell count decreased [None]
  - Eosinophil count increased [None]

NARRATIVE: CASE EVENT DATE: 20140530
